FAERS Safety Report 5255210-0 (Version None)
Quarter: 2007Q1

REPORT INFORMATION
  Report Type: 
  Country: None (occurrence: None)
  Receive Date: 20070305
  Receipt Date: 20070220
  Transmission Date: 20070707
  Serious: Yes (Other)
  Sender: FDA-Public Use
  Company Number: 2007GB00370

PATIENT
  Sex: Female

DRUGS (1)
  1. LOSEC [Suspect]
     Route: 048

REACTIONS (2)
  - HAEMATEMESIS [None]
  - WEIGHT DECREASED [None]
